FAERS Safety Report 8237777-3 (Version None)
Quarter: 2012Q1

REPORT INFORMATION
  Report Type: 
  Country: None (occurrence: None)
  Receive Date: 20120327
  Receipt Date: 20120321
  Transmission Date: 20120608
  Serious: Yes (Hospitalization)
  Sender: FDA-Public Use
  Company Number: US-VERTEX PHARMACEUTICALS INC.-AE-2012-004154

PATIENT
  Sex: Female

DRUGS (3)
  1. PEGASYS [Concomitant]
     Indication: HEPATITIS C
  2. RIBAVIRIN [Concomitant]
     Indication: HEPATITIS C
  3. INCIVEK [Suspect]
     Indication: HEPATITIS C

REACTIONS (2)
  - ANAEMIA [None]
  - RASH [None]
